FAERS Safety Report 6292872-3 (Version None)
Quarter: 2009Q3

REPORT INFORMATION
  Report Type: 
  Country: None (occurrence: None)
  Receive Date: 20090731
  Receipt Date: 20090727
  Transmission Date: 20100115
  Serious: Yes (Death, Hospitalization)
  Sender: FDA-Public Use
  Company Number: PHHY2009IL31396

PATIENT
  Age: 60 Year
  Sex: Female

DRUGS (3)
  1. ZOMETA [Suspect]
     Indication: BREAST CANCER METASTATIC
  2. AREDIA [Suspect]
  3. HORMONES [Concomitant]

REACTIONS (4)
  - ACTINOMYCOSIS [None]
  - DEBRIDEMENT [None]
  - OSTEONECROSIS [None]
  - SEPSIS [None]
